FAERS Safety Report 10207739 (Version 1)
Quarter: 2014Q2

REPORT INFORMATION
  Report Type: Spontaneous
  Country: US (occurrence: US)
  Receive Date: 20140530
  Receipt Date: 20140530
  Transmission Date: 20141212
  Serious: No
  Sender: FDA-Public Use
  Company Number: US-TEVA-483945USA

PATIENT
  Age: 45 Year
  Sex: Female
  Weight: 69.46 kg

DRUGS (3)
  1. COPAXONE [Suspect]
     Indication: MULTIPLE SCLEROSIS
     Dates: start: 201404
  2. NORTRIPTYLINE [Concomitant]
  3. VESICARE [Concomitant]

REACTIONS (1)
  - Stomatitis [Not Recovered/Not Resolved]
